FAERS Safety Report 21658478 (Version 7)
Quarter: 2023Q2

REPORT INFORMATION
  Report Type: Report from Study
  Country: CN (occurrence: CN)
  Receive Date: 20221129
  Receipt Date: 20230420
  Transmission Date: 20230722
  Serious: Yes (Hospitalization)
  Sender: FDA-Public Use
  Company Number: CN-GSK-CN2022175107

PATIENT

DRUGS (14)
  1. BELANTAMAB MAFODOTIN [Suspect]
     Active Substance: BELANTAMAB MAFODOTIN
     Indication: Plasma cell myeloma
     Dosage: 175 MG, CYC (2.5 MG/KG) Q3W
     Route: 042
     Dates: start: 20220218
  2. BORTEZOMIB [Suspect]
     Active Substance: BORTEZOMIB
     Indication: Plasma cell myeloma
     Dosage: 2.39 MG, CYC (1.3 MG/M2, ON DAYS 1, 4, 8 AND 11 OF CYCLES 1-8 (21-DAY CYCLE))
     Route: 058
     Dates: start: 20220218, end: 20220314
  3. BORTEZOMIB [Suspect]
     Active Substance: BORTEZOMIB
     Dosage: 2.39 MG, CYC (DAY 1,4,8) (1.3 MG/M2)
     Route: 058
     Dates: start: 20220510, end: 20220517
  4. BORTEZOMIB [Suspect]
     Active Substance: BORTEZOMIB
     Dosage: 1.84 MG, CYC (DAY 1,4,8,11) ( (1.0 MG/M2)
     Route: 058
     Dates: start: 20220602, end: 20220830
  5. BORTEZOMIB [Suspect]
     Active Substance: BORTEZOMIB
     Dosage: 1.29 MG, CYC (0.70 MG/M2)
     Route: 058
     Dates: start: 20220905
  6. DEXAMETHASONE [Suspect]
     Active Substance: DEXAMETHASONE
     Indication: Plasma cell myeloma
     Dosage: 20 MG, CYC (DAYS 1, 2, 4, 5, 8, 9, 11, 12, 15, 16)
     Route: 048
     Dates: start: 20220218, end: 20220218
  7. DEXAMETHASONE [Suspect]
     Active Substance: DEXAMETHASONE
     Dosage: 20 MG, CYC (DAY 1,2,4,5)
     Route: 048
     Dates: start: 20220311, end: 20220315
  8. DEXAMETHASONE [Suspect]
     Active Substance: DEXAMETHASONE
     Dosage: 20 MG, CYC (1,2,4,5,8,9,11,12)
     Route: 048
     Dates: start: 20220510, end: 20220518
  9. DEXAMETHASONE [Suspect]
     Active Substance: DEXAMETHASONE
     Dosage: 20 MG, CYC (1,2,4,5,8,9,11,12)
     Route: 048
     Dates: start: 20220602, end: 20220620
  10. DEXAMETHASONE [Suspect]
     Active Substance: DEXAMETHASONE
     Dosage: 20 MG, CYC (1,2,4,5,8,9,11,12)
     Route: 048
     Dates: start: 20220624, end: 20220705
  11. DEXAMETHASONE [Suspect]
     Active Substance: DEXAMETHASONE
     Dosage: 20 MG, CYC (1,2,4,5,8,9,11,12)
     Route: 048
     Dates: start: 20220715, end: 20220726
  12. DEXAMETHASONE [Suspect]
     Active Substance: DEXAMETHASONE
     Dosage: 20 MG, CYC (1,2,4,5,8,9,11,12)
     Route: 048
     Dates: start: 20220805, end: 20220816
  13. DEXAMETHASONE [Suspect]
     Active Substance: DEXAMETHASONE
     Dosage: 20 MG, CYC (1,2,4,5)
     Route: 048
     Dates: start: 20220826, end: 20220831
  14. DEXAMETHASONE [Suspect]
     Active Substance: DEXAMETHASONE
     Dosage: 20 MG, CYC (DAY 11, 12)
     Route: 048
     Dates: start: 20220905

REACTIONS (1)
  - Nasopharyngeal polyp [Recovering/Resolving]

NARRATIVE: CASE EVENT DATE: 20221123
